FAERS Safety Report 8359241-3 (Version None)
Quarter: 2012Q2

REPORT INFORMATION
  Report Type: 
  Country: None (occurrence: None)
  Receive Date: 20120511
  Receipt Date: 20120424
  Transmission Date: 20120825
  Serious: Yes (Other)
  Sender: FDA-Public Use
  Company Number: 1267825

PATIENT
  Sex: Female

DRUGS (2)
  1. FENTANYL CITRATE [Suspect]
     Indication: PAIN
  2. SODIUM CHLORIDE 0.9% [Suspect]

REACTIONS (7)
  - ERYTHEMA [None]
  - INFUSION RELATED REACTION [None]
  - MATERNAL EXPOSURE TIMING UNSPECIFIED [None]
  - DYSPNOEA [None]
  - UTERINE HYPERTONUS [None]
  - CYANOSIS [None]
  - MALAISE [None]
